FAERS Safety Report 12637492 (Version 1)
Quarter: 2016Q3

REPORT INFORMATION
  Report Type: Spontaneous
  Country: US (occurrence: US)
  Receive Date: 20160809
  Receipt Date: 20160809
  Transmission Date: 20161109
  Serious: No
  Sender: FDA-Public Use
  Company Number: US-BEH-2016062887

PATIENT
  Age: 81 Year
  Sex: Female
  Weight: 75 kg

DRUGS (23)
  1. PRIVIGEN [Suspect]
     Active Substance: HUMAN IMMUNOGLOBULIN G
     Indication: IMMUNODEFICIENCY COMMON VARIABLE
     Route: 042
     Dates: start: 20160310
  2. EPIPEN [Concomitant]
     Active Substance: EPINEPHRINE
  3. LIPITOR [Concomitant]
     Active Substance: ATORVASTATIN CALCIUM
  4. LOSARTAN. [Concomitant]
     Active Substance: LOSARTAN
  5. LEVOTHYROXINE. [Concomitant]
     Active Substance: LEVOTHYROXINE
  6. CYMBALTA [Concomitant]
     Active Substance: DULOXETINE HYDROCHLORIDE
  7. PROTONIX [Concomitant]
     Active Substance: PANTOPRAZOLE SODIUM
  8. NOVOLOG [Concomitant]
     Active Substance: INSULIN ASPART
  9. ACETAMINOPHEN. [Concomitant]
     Active Substance: ACETAMINOPHEN
  10. SODIUM CHLORIDE. [Concomitant]
     Active Substance: SODIUM CHLORIDE
  11. HYDROCHLOROTHIAZIDE. [Concomitant]
     Active Substance: HYDROCHLOROTHIAZIDE
  12. GAMMAGARD [Concomitant]
     Active Substance: HUMAN IMMUNOGLOBULIN G
  13. CEPHALEXIN. [Concomitant]
     Active Substance: CEPHALEXIN
  14. HEPARIN [Concomitant]
     Active Substance: HEPARIN SODIUM
  15. LORTAB [Concomitant]
     Active Substance: ACETAMINOPHEN\HYDROCODONE BITARTRATE
  16. VITAMIN C [Concomitant]
     Active Substance: ASCORBIC ACID
  17. DIPHENHYDRAMINE. [Concomitant]
     Active Substance: DIPHENHYDRAMINE
  18. LANTUS [Concomitant]
     Active Substance: INSULIN GLARGINE
  19. HUMALOG [Concomitant]
     Active Substance: INSULIN LISPRO
  20. CARVEDILOL. [Concomitant]
     Active Substance: CARVEDILOL
  21. GABAPENTIN. [Concomitant]
     Active Substance: GABAPENTIN
  22. ASPIRIN. [Concomitant]
     Active Substance: ASPIRIN
  23. KEPPRA [Concomitant]
     Active Substance: LEVETIRACETAM

REACTIONS (1)
  - Cystitis [Unknown]

NARRATIVE: CASE EVENT DATE: 20160331
